FAERS Safety Report 12806312 (Version 2)
Quarter: 2016Q4

REPORT INFORMATION
  Report Type: Spontaneous
  Country: None (occurrence: US)
  Receive Date: 20161004
  Receipt Date: 20161012
  Transmission Date: 20170207
  Serious: No
  Sender: FDA-Public Use
  Company Number: US-UNICHEM LABORATORIES LIMITED-UCM201508-000734

PATIENT
  Age: 81 Year
  Sex: Male
  Weight: 136.07 kg

DRUGS (1)
  1. HYDROCHLOROTHIAZIDE. [Suspect]
     Active Substance: HYDROCHLOROTHIAZIDE
     Indication: OEDEMA
     Dates: end: 20150825

REACTIONS (2)
  - Dysgeusia [Not Recovered/Not Resolved]
  - Weight increased [Unknown]
